FAERS Safety Report 16992765 (Version 1)
Quarter: 2019Q4

REPORT INFORMATION
  Report Type: Spontaneous
  Country: US (occurrence: US)
  Receive Date: 20190923
  Receipt Date: 20190923
  Transmission Date: 20200122
  Serious: No
  Sender: FDA-Public Use
  Company Number: None

PATIENT
  Age: 50 Year
  Sex: Male

DRUGS (1)
  1. ENBREL [Suspect]
     Active Substance: ETANERCEPT
     Dosage: ?          OTHER FREQUENCY:OTHER;?
     Route: 058
     Dates: start: 201609

REACTIONS (5)
  - Iritis [None]
  - Therapy cessation [None]
  - Arthralgia [None]
  - Product prescribing issue [None]
  - Musculoskeletal stiffness [None]

NARRATIVE: CASE EVENT DATE: 20190902
